FAERS Safety Report 23572693 (Version 1)
Quarter: 2024Q1

REPORT INFORMATION
  Report Type: Spontaneous
  Country: US (occurrence: US)
  Receive Date: 20240227
  Receipt Date: 20240227
  Transmission Date: 20240410
  Serious: No
  Sender: FDA-Public Use
  Company Number: US-AVADEL CNS PHARMACEUTICALS, LLC-2024AVA00003

PATIENT
  Age: 21 Year
  Sex: Female
  Weight: 61.224 kg

DRUGS (1)
  1. LUMRYZ [Suspect]
     Active Substance: SODIUM OXYBATE
     Indication: Narcolepsy
     Dosage: 6 G, ONCE NIGHTLY AT BEDTIME
     Route: 048
     Dates: start: 20231215

REACTIONS (2)
  - Dizziness [Recovered/Resolved]
  - Product dose omission issue [Recovered/Resolved]

NARRATIVE: CASE EVENT DATE: 20231201
